FAERS Safety Report 7708078-4 (Version None)
Quarter: 2011Q3

REPORT INFORMATION
  Report Type: 
  Country: None (occurrence: None)
  Receive Date: 20110825
  Receipt Date: 20110816
  Transmission Date: 20111222
  Serious: Yes (Hospitalization, Disabling)
  Sender: FDA-Public Use
  Company Number: DE-BIOGENIDEC-2011BI020646

PATIENT
  Age: 41 Year
  Sex: Female
  Weight: 58 kg

DRUGS (36)
  1. PARACETAMOL [Concomitant]
     Route: 042
     Dates: start: 20090403, end: 20090403
  2. ZOLPIDEM [Concomitant]
     Indication: INSOMNIA
     Route: 048
     Dates: start: 20090318, end: 20090322
  3. EMBOLEX [Concomitant]
     Route: 058
     Dates: start: 20090714, end: 20090717
  4. GABAPENTINE [Concomitant]
     Route: 048
     Dates: start: 20090610, end: 20090612
  5. TRIMETHOPRIM [Concomitant]
     Indication: PROPHYLAXIS
  6. TRIMETHOPRIM [Concomitant]
     Route: 048
     Dates: start: 20090623, end: 20091001
  7. PANTOPRAZOLE [Concomitant]
     Indication: GASTRITIS PROPHYLAXIS
     Route: 048
     Dates: start: 20090814, end: 20090814
  8. FENISTIL [Concomitant]
     Route: 042
     Dates: start: 20090417, end: 20090418
  9. AMITRIPTYLINE HCL [Concomitant]
     Indication: ANALGESIC THERAPY
     Route: 048
     Dates: start: 20090516, end: 20090501
  10. GABAPENTINE [Concomitant]
     Route: 048
     Dates: start: 20090603, end: 20090609
  11. GABAPENTINE [Concomitant]
     Route: 048
     Dates: start: 20090620, end: 20090814
  12. GABAPENTINE [Concomitant]
     Route: 048
     Dates: start: 20090801, end: 20091216
  13. NOVALGIN [Concomitant]
     Indication: ANALGESIC THERAPY
     Route: 048
     Dates: start: 20090607, end: 20090623
  14. PREDNISONE [Concomitant]
     Indication: NEUROMYELITIS OPTICA
     Route: 048
     Dates: start: 20090313, end: 20090314
  15. PREDNISOLONE [Concomitant]
     Indication: PROPHYLAXIS
     Route: 042
     Dates: start: 20090403, end: 20090403
  16. PREDNISOLONE [Concomitant]
     Route: 042
     Dates: start: 20090409, end: 20090410
  17. PREDNISOLONE [Concomitant]
     Route: 042
     Dates: start: 20090417, end: 20090418
  18. EMBOLEX [Concomitant]
     Route: 058
     Dates: start: 20090814, end: 20090814
  19. KEVATRIL [Concomitant]
     Indication: PROPHYLAXIS OF NAUSEA AND VOMITING
     Route: 042
     Dates: start: 20090814, end: 20090814
  20. PREDNISONE [Concomitant]
     Route: 048
     Dates: start: 20090315, end: 20090316
  21. EMBOLEX [Concomitant]
     Route: 058
     Dates: start: 20090527, end: 20090530
  22. OMEPRAZOLE [Concomitant]
     Route: 048
     Dates: start: 20090828, end: 20090930
  23. TYSABRI [Suspect]
     Indication: MULTIPLE SCLEROSIS
     Route: 042
     Dates: start: 20080526, end: 20090203
  24. SULFAMETHOXAZOLE [Concomitant]
     Route: 048
     Dates: start: 20090623, end: 20091001
  25. PREGABALIN [Concomitant]
     Indication: ANALGESIC THERAPY
     Route: 048
     Dates: start: 20090511, end: 20090515
  26. GABAPENTINE [Concomitant]
     Route: 048
     Dates: start: 20090616, end: 20090619
  27. SULFAMETHOXAZOLE [Concomitant]
     Indication: PROPHYLAXIS
  28. OMEPRAZOLE [Concomitant]
     Indication: GASTRITIS PROPHYLAXIS
     Route: 048
     Dates: start: 20090615, end: 20090623
  29. PARACETAMOL [Concomitant]
     Route: 048
     Dates: start: 20090506, end: 20090506
  30. FENISTIL [Concomitant]
     Route: 042
     Dates: start: 20090409, end: 20090410
  31. EMBOLEX [Concomitant]
     Indication: THROMBOSIS PROPHYLAXIS
     Route: 058
     Dates: start: 20090504, end: 20090515
  32. EMBOLEX [Concomitant]
     Route: 058
     Dates: start: 20090602, end: 20090623
  33. PARACETAMOL [Concomitant]
     Indication: ANALGESIC THERAPY
     Route: 048
     Dates: start: 20090318, end: 20090323
  34. FENISTIL [Concomitant]
     Indication: PROPHYLAXIS
     Route: 042
     Dates: start: 20090403, end: 20090403
  35. GABAPENTINE [Concomitant]
     Indication: ANALGESIC THERAPY
     Route: 048
     Dates: start: 20090527, end: 20090602
  36. GABAPENTINE [Concomitant]
     Route: 048
     Dates: start: 20090613, end: 20090615

REACTIONS (1)
  - NEUROMYELITIS OPTICA [None]
